FAERS Safety Report 9676040 (Version 3)
Quarter: 2013Q4

REPORT INFORMATION
  Report Type: Report from Study
  Country: CA (occurrence: CA)
  Receive Date: 20131107
  Receipt Date: 20131118
  Transmission Date: 20140711
  Serious: Yes (Other)
  Sender: FDA-Public Use
  Company Number: CA-ABBVIE-13P-028-1149797-00

PATIENT
  Age: 38 Year
  Sex: Female
  Weight: 54.48 kg

DRUGS (5)
  1. HUMIRA [Suspect]
     Indication: PSORIATIC ARTHROPATHY
     Dosage: LATEST INJECTION: 10-SEP-2013
     Route: 058
     Dates: start: 20130716, end: 20131007
  2. ARTHROTEC [Concomitant]
     Indication: PSORIATIC ARTHROPATHY
     Route: 048
  3. LEFLUNOMIDE [Concomitant]
     Indication: PSORIATIC ARTHROPATHY
     Route: 048
     Dates: start: 2009
  4. TRAMADOL [Concomitant]
     Indication: MIGRAINE
     Route: 048
  5. ACETAMINOPHEN [Concomitant]
     Indication: MIGRAINE
     Route: 048

REACTIONS (3)
  - Cervix disorder [Unknown]
  - Hyperhidrosis [Not Recovered/Not Resolved]
  - Cystitis [Recovered/Resolved]
